FAERS Safety Report 17068438 (Version 1)
Quarter: 2019Q4

REPORT INFORMATION
  Report Type: Spontaneous
  Country: FR (occurrence: FR)
  Receive Date: 20191123
  Receipt Date: 20191123
  Transmission Date: 20200122
  Serious: Yes (Death, Hospitalization)
  Sender: FDA-Public Use
  Company Number: FR-ACCORD-161757

PATIENT
  Age: 76 Year
  Sex: Female
  Weight: 80 kg

DRUGS (15)
  1. FLUOROURACIL. [Suspect]
     Active Substance: FLUOROURACIL
     Indication: COLORECTAL CANCER METASTATIC
     Route: 042
     Dates: start: 20080910, end: 20090505
  2. AVASTIN [Suspect]
     Active Substance: BEVACIZUMAB
     Indication: COLORECTAL CANCER METASTATIC
     Route: 042
     Dates: start: 20080912, end: 20090311
  3. ZOPHREN [Concomitant]
     Active Substance: ONDANSETRON
     Indication: PRODUCT USED FOR UNKNOWN INDICATION
  4. SOLU-MEDROL [Concomitant]
     Active Substance: METHYLPREDNISOLONE SODIUM SUCCINATE
     Indication: PRODUCT USED FOR UNKNOWN INDICATION
  5. CELIPROLOL [Concomitant]
     Active Substance: CELIPROLOL
     Indication: PRODUCT USED FOR UNKNOWN INDICATION
  6. ELVORINE [Suspect]
     Active Substance: LEUCOVORIN CALCIUM
     Indication: COLORECTAL CANCER METASTATIC
     Route: 042
     Dates: start: 20080910, end: 20090407
  7. NEULASTA [Concomitant]
     Active Substance: PEGFILGRASTIM
     Indication: PRODUCT USED FOR UNKNOWN INDICATION
     Dates: start: 20081006
  8. COAPROLVEL [Concomitant]
     Indication: PRODUCT USED FOR UNKNOWN INDICATION
  9. NOVONORM [Concomitant]
     Active Substance: REPAGLINIDE
     Indication: PRODUCT USED FOR UNKNOWN INDICATION
  10. ELISOR [Concomitant]
     Active Substance: PRAVASTATIN SODIUM
     Indication: PRODUCT USED FOR UNKNOWN INDICATION
     Dosage: NOT REPORTED
  11. ACTOS [Concomitant]
     Active Substance: PIOGLITAZONE HYDROCHLORIDE
     Indication: PRODUCT USED FOR UNKNOWN INDICATION
  12. POLARAMINE [Concomitant]
     Active Substance: DEXCHLORPHENIRAMINE MALEATE
     Indication: PRODUCT USED FOR UNKNOWN INDICATION
  13. CAMPTO [Suspect]
     Active Substance: IRINOTECAN
     Indication: COLORECTAL CANCER METASTATIC
     Route: 042
     Dates: start: 20080910, end: 20090505
  14. ATROPINE. [Concomitant]
     Active Substance: ATROPINE
     Indication: PRODUCT USED FOR UNKNOWN INDICATION
  15. ERBITUX [Suspect]
     Active Substance: CETUXIMAB
     Indication: COLORECTAL CANCER METASTATIC
     Route: 042
     Dates: start: 20090427, end: 20090505

REACTIONS (1)
  - Haemorrhage intracranial [Fatal]

NARRATIVE: CASE EVENT DATE: 20090505
